FAERS Safety Report 24662352 (Version 1)
Quarter: 2024Q4

REPORT INFORMATION
  Report Type: Report from Study
  Country: US (occurrence: US)
  Receive Date: 20241125
  Receipt Date: 20241125
  Transmission Date: 20250115
  Serious: Yes (Hospitalization)
  Sender: ACADIA PHARMACEUTICALS
  Company Number: US-ACADIA PHARMACEUTICALS INC.-ACA-2024-PIM-007290

PATIENT
  Age: 67 Year
  Sex: Female

DRUGS (3)
  1. NUPLAZID [Suspect]
     Active Substance: PIMAVANSERIN TARTRATE
     Indication: Parkinson^s disease
     Dosage: 34 MILLIGRAM, QD
     Route: 048
     Dates: start: 202301
  2. NUPLAZID [Suspect]
     Active Substance: PIMAVANSERIN TARTRATE
     Indication: Dyskinesia
  3. DUOPA [Concomitant]
     Active Substance: CARBIDOPA\LEVODOPA
     Dosage: (100ML X 7)

REACTIONS (4)
  - Accident [Unknown]
  - Medical device change [Unknown]
  - Device dislocation [Unknown]
  - Posture abnormal [Unknown]

NARRATIVE: CASE EVENT DATE: 20241001
